FAERS Safety Report 4691727-5 (Version None)
Quarter: 2005Q2

REPORT INFORMATION
  Report Type: 
  Country: None (occurrence: None)
  Receive Date: 20050616
  Receipt Date: 20050608
  Transmission Date: 20051028
  Serious: Yes (Death, Other)
  Sender: FDA-Public Use
  Company Number: 200515291GDDC

PATIENT
  Age: 62 Year
  Sex: Male
  Weight: 40.7 kg

DRUGS (8)
  1. RIFADIN [Suspect]
     Indication: PULMONARY TUBERCULOSIS
     Route: 048
     Dates: start: 20010515, end: 20010522
  2. PYRAMIDE [Suspect]
     Indication: PULMONARY TUBERCULOSIS
     Route: 048
     Dates: start: 20010515, end: 20010525
  3. EBUTOL [Concomitant]
     Indication: PULMONARY TUBERCULOSIS
     Route: 048
     Dates: start: 20010515, end: 20010618
  4. ISCOTIN [Concomitant]
     Indication: PULMONARY TUBERCULOSIS
     Route: 048
     Dates: start: 20010515, end: 20010618
  5. URSODIOL [Concomitant]
     Indication: CIRRHOSIS ALCOHOLIC
     Route: 048
     Dates: start: 20010515, end: 20010618
  6. LIVACT [Concomitant]
     Indication: CIRRHOSIS ALCOHOLIC
     Route: 048
     Dates: start: 20010515, end: 20010525
  7. KELNAC [Concomitant]
     Indication: GASTRIC ULCER
     Route: 048
     Dates: start: 20010515, end: 20010525
  8. LENDORM [Concomitant]
     Indication: INSOMNIA
     Route: 048
     Dates: start: 20010515, end: 20010524

REACTIONS (5)
  - DECREASED APPETITE [None]
  - LIVER DISORDER [None]
  - NAUSEA [None]
  - VARICES OESOPHAGEAL [None]
  - VOMITING [None]
